FAERS Safety Report 13006485 (Version 1)
Quarter: 2016Q4

REPORT INFORMATION
  Report Type: Spontaneous
  Country: US (occurrence: US)
  Receive Date: 20161206
  Receipt Date: 20161206
  Transmission Date: 20170207
  Serious: No
  Sender: FDA-Public Use
  Company Number: None

PATIENT
  Age: 64 Year
  Sex: Female

DRUGS (4)
  1. VITAMINS [Concomitant]
     Active Substance: VITAMINS
  2. BRIO HYDRA SKIN SCIENCE, UTAH [Suspect]
     Active Substance: COSMETICS
  3. MINERALS [Concomitant]
     Active Substance: MINERALS
  4. ALLEGRO HYDRA SKIN SCIENCE, UTAH [Suspect]
     Active Substance: HYALURONIC ACID
     Route: 061
     Dates: start: 20160711, end: 20160713

REACTIONS (2)
  - Product label confusion [None]
  - Skin reaction [None]

NARRATIVE: CASE EVENT DATE: 20160714
